FAERS Safety Report 6772275-5 (Version None)
Quarter: 2010Q2

REPORT INFORMATION
  Report Type: 
  Country: None (occurrence: None)
  Receive Date: 20100616
  Receipt Date: 20090805
  Transmission Date: 20101027
  Serious: No
  Sender: FDA-Public Use
  Company Number: US-ASTRAZENECA-2009SE06877

PATIENT
  Age: 78 Year
  Sex: Female
  Weight: 57.6 kg

DRUGS (10)
  1. PULMICORT FLEXHALER [Suspect]
     Indication: ASTHMA
     Dosage: 720 UG TOTAL DAILY DOSE
     Route: 055
     Dates: start: 20090727
  2. ZOLOFT [Concomitant]
  3. VALIUM [Concomitant]
  4. NORVASC [Concomitant]
  5. NITROGLYCERIN [Concomitant]
  6. TENORMIN [Concomitant]
  7. LEBSIN [Concomitant]
  8. METAMUCIL-2 [Concomitant]
  9. VITAMIN D [Concomitant]
  10. INJECTIONS OF BONIVA [Concomitant]

REACTIONS (3)
  - COUGH [None]
  - ORAL CANDIDIASIS [None]
  - WHEEZING [None]
